FAERS Safety Report 5449306-8 (Version None)
Quarter: 2007Q3

REPORT INFORMATION
  Report Type: 
  Country: None (occurrence: None)
  Receive Date: 20070911
  Receipt Date: 20070830
  Transmission Date: 20080115
  Serious: Yes (Other)
  Sender: FDA-Public Use
  Company Number: US-PFIZER INC-2007047020

PATIENT
  Age: 81 Year
  Sex: Female

DRUGS (4)
  1. DETROL LA [Suspect]
     Indication: BLADDER DISORDER
  2. TROSPIUM [Suspect]
     Dates: start: 20060530, end: 20070721
  3. OXYBUTYNIN CHLORIDE [Suspect]
     Dates: start: 20060101, end: 20060101
  4. ALL OTHER THERAPEUTIC PRODUCTS [Suspect]
     Dates: start: 20061006, end: 20061011

REACTIONS (16)
  - ADVERSE EVENT [None]
  - COUGH [None]
  - DERMATITIS CONTACT [None]
  - DRUG INEFFECTIVE [None]
  - DRY THROAT [None]
  - DYSPEPSIA [None]
  - DYSPHAGIA [None]
  - GASTRIC DISORDER [None]
  - GASTRIN SECRETION DISORDER [None]
  - GASTROINTESTINAL DISORDER [None]
  - GASTROINTESTINAL HYPOMOTILITY [None]
  - GASTROOESOPHAGEAL REFLUX DISEASE [None]
  - OESOPHAGEAL DISORDER [None]
  - RASH [None]
  - RESPIRATORY ARREST [None]
  - SALIVA ALTERED [None]
